FAERS Safety Report 7415345-0 (Version None)
Quarter: 2011Q2

REPORT INFORMATION
  Report Type: 
  Country: None (occurrence: None)
  Receive Date: 20110414
  Receipt Date: 20110407
  Transmission Date: 20111010
  Serious: Yes (Death)
  Sender: FDA-Public Use
  Company Number: A0915298A

PATIENT
  Age: 64 Year
  Sex: Female

DRUGS (4)
  1. ADVAIR HFA [Suspect]
     Indication: PULMONARY FIBROSIS
     Dosage: 1PUFF TWICE PER DAY
     Route: 055
     Dates: start: 20060201, end: 20110217
  2. PREDNISONE [Concomitant]
     Dosage: 20MG PER DAY
     Route: 048
  3. DILTIAZEM [Concomitant]
  4. DIABETES MEDICATION [Concomitant]

REACTIONS (4)
  - ACUTE RESPIRATORY FAILURE [None]
  - PULMONARY FIBROSIS [None]
  - LUNG DISORDER [None]
  - PNEUMONIA [None]
